FAERS Safety Report 24353249 (Version 2)
Quarter: 2025Q1

REPORT INFORMATION
  Report Type: Report from Study
  Country: CL (occurrence: CL)
  Receive Date: 20240923
  Receipt Date: 20250214
  Transmission Date: 20250408
  Serious: Yes (Hospitalization, Other)
  Sender: ROCHE
  Company Number: CL-ROCHE-10000086293

PATIENT

DRUGS (1)
  1. OCRELIZUMAB [Suspect]
     Active Substance: OCRELIZUMAB
     Indication: Multiple sclerosis
     Route: 065

REACTIONS (16)
  - COVID-19 [Unknown]
  - Infusion related reaction [Unknown]
  - Urosepsis [Unknown]
  - Pelvic sepsis [Unknown]
  - Peritonsillar abscess [Unknown]
  - Pneumonia [Unknown]
  - Hepatitis [Unknown]
  - Hypoxic-ischaemic encephalopathy [Unknown]
  - Infection [Unknown]
  - Breast cancer [Unknown]
  - Squamous cell carcinoma [Unknown]
  - Respiratory tract infection [Unknown]
  - Urinary tract infection [Unknown]
  - Gastroenteritis [Unknown]
  - Herpes virus infection [Unknown]
  - Infection [Unknown]
